FAERS Safety Report 12810868 (Version 2)
Quarter: 2016Q4

REPORT INFORMATION
  Report Type: Spontaneous
  Country: US (occurrence: US)
  Receive Date: 20161005
  Receipt Date: 20161108
  Transmission Date: 20170207
  Serious: No
  Sender: FDA-Public Use
  Company Number: US-GLAXOSMITHKLINE-US2016GSK145278

PATIENT
  Age: 65 Year
  Sex: Male

DRUGS (2)
  1. TANZEUM [Suspect]
     Active Substance: ALBIGLUTIDE
     Indication: TYPE 2 DIABETES MELLITUS
     Dosage: 30 MG, SINGLE
     Route: 042
     Dates: start: 20160903, end: 20160903
  2. TANZEUM [Suspect]
     Active Substance: ALBIGLUTIDE
     Dosage: 50 MG, WE
     Route: 042
     Dates: start: 20160910

REACTIONS (7)
  - Decreased appetite [Unknown]
  - Nausea [Not Recovered/Not Resolved]
  - Product quality issue [Unknown]
  - Device leakage [Unknown]
  - Blood glucose increased [Unknown]
  - Accidental exposure to product [Unknown]
  - Weight decreased [Unknown]

NARRATIVE: CASE EVENT DATE: 2016
